FAERS Safety Report 6757828-2 (Version None)
Quarter: 2010Q2

REPORT INFORMATION
  Report Type: 
  Country: None (occurrence: None)
  Receive Date: 20100607
  Receipt Date: 20100527
  Transmission Date: 20101027
  Serious: Yes (Other)
  Sender: FDA-Public Use
  Company Number: PHHY2010CA34736

PATIENT
  Sex: Male

DRUGS (3)
  1. CLOZARIL [Suspect]
     Dosage: UNK
  2. OLANZAPINE [Concomitant]
  3. SEROQUEL [Concomitant]

REACTIONS (4)
  - ABDOMINAL PAIN UPPER [None]
  - FASTING [None]
  - GASTRIC HAEMORRHAGE [None]
  - WEIGHT INCREASED [None]
